FAERS Safety Report 20833082 (Version 1)
Quarter: 2022Q2

REPORT INFORMATION
  Report Type: Spontaneous
  Country: US (occurrence: None)
  Receive Date: 20220514
  Receipt Date: 20220514
  Transmission Date: 20220721
  Serious: Yes (Death, Hospitalization)
  Sender: FDA-Public Use
  Company Number: None

PATIENT
  Age: 66 Year
  Sex: Male
  Weight: 121 kg

DRUGS (2)
  1. BENDAMUSTINE HYDROCHLORIDE [Suspect]
     Active Substance: BENDAMUSTINE HYDROCHLORIDE
     Dates: end: 20220509
  2. RITUXIMAB [Suspect]
     Active Substance: RITUXIMAB
     Dates: end: 20220409

REACTIONS (8)
  - Asthenia [None]
  - Dyspnoea [None]
  - Pleural effusion [None]
  - Renal failure [None]
  - Respiratory failure [None]
  - Haemofiltration [None]
  - Disease progression [None]
  - Tumour lysis syndrome [None]

NARRATIVE: CASE EVENT DATE: 20220509
